FAERS Safety Report 6019544-4 (Version None)
Quarter: 2008Q4

REPORT INFORMATION
  Report Type: 
  Country: None (occurrence: None)
  Receive Date: 20081224
  Receipt Date: 20081215
  Transmission Date: 20090506
  Serious: Yes (Hospitalization)
  Sender: FDA-Public Use
  Company Number: PHHY2008FR32082

PATIENT
  Sex: Female

DRUGS (10)
  1. COTAREG [Suspect]
     Dosage: UNK
     Dates: end: 20080601
  2. KARDEGIC [Concomitant]
     Dosage: 160 MG, 1 DF/DAY
     Route: 048
  3. DETENSIEL [Concomitant]
     Dosage: 1 DF DAILY
     Route: 048
  4. DIFFU K [Concomitant]
     Dosage: UNK
     Dates: start: 20080601
  5. PRAVASTATIN [Concomitant]
     Dosage: 1 DF DAILY
  6. NITRODERM [Concomitant]
     Dosage: 1 DF DAILY
  7. FORLAX [Concomitant]
     Dosage: UNK
     Dates: end: 20080601
  8. ATHYMIL [Concomitant]
     Dosage: 60 MG DAILY
  9. SERESTA [Concomitant]
     Dosage: UNK
     Dates: end: 20080601
  10. IMOVANE [Concomitant]
     Dosage: 7.5 MG DAILY

REACTIONS (5)
  - ABNORMAL BEHAVIOUR [None]
  - DIET REFUSAL [None]
  - EPILEPSY [None]
  - GENERAL PHYSICAL HEALTH DETERIORATION [None]
  - HYPONATRAEMIA [None]
